FAERS Safety Report 26215941 (Version 1)
Quarter: 2025Q4

REPORT INFORMATION
  Report Type: Spontaneous
  Country: EU (occurrence: EU)
  Receive Date: 20251231
  Receipt Date: 20251231
  Transmission Date: 20260118
  Serious: Yes (Hospitalization, Other)
  Sender: TEVA
  Company Number: None

PATIENT
  Age: 61 Year
  Sex: Male
  Weight: 102.3 kg

DRUGS (15)
  1. TRISENOX [Suspect]
     Active Substance: ARSENIC TRIOXIDE
     Indication: Acute myeloid leukaemia
     Dosage: SOLUTION FOR INFUSION (TO BE DILUTED)
     Route: 042
     Dates: start: 20250626, end: 20250808
  2. AMLODIPINE [Concomitant]
     Active Substance: AMLODIPINE BESYLATE
     Indication: Hypertension
     Route: 048
     Dates: start: 20250626
  3. VALACYCLOVIR [Concomitant]
     Active Substance: VALACYCLOVIR HYDROCHLORIDE
     Indication: Antiviral prophylaxis
     Route: 048
     Dates: start: 20250627
  4. ZOPICLONE [Concomitant]
     Active Substance: ZOPICLONE
     Indication: Sleep disorder
     Route: 048
     Dates: start: 20250724, end: 20250810
  5. ZOPICLONE [Concomitant]
     Active Substance: ZOPICLONE
     Indication: Sleep disorder
     Route: 048
     Dates: start: 20250810
  6. SOLUPRED [Concomitant]
     Indication: Acute myeloid leukaemia
     Route: 048
     Dates: start: 20250804, end: 20250807
  7. SOLUPRED [Concomitant]
     Indication: Acute myeloid leukaemia
     Route: 048
     Dates: start: 20250718, end: 20250723
  8. SOLUPRED [Concomitant]
     Indication: Acute myeloid leukaemia
     Route: 048
     Dates: start: 20250801, end: 20250802
  9. TRAMADOL HYDROCHLORIDE [Suspect]
     Active Substance: TRAMADOL HYDROCHLORIDE
     Indication: Acute myeloid leukaemia
     Dosage: CONTRAMAL L.P.
     Route: 065
     Dates: start: 20250729, end: 20250808
  10. TRAMADOL HYDROCHLORIDE [Suspect]
     Active Substance: TRAMADOL HYDROCHLORIDE
     Indication: Acute myeloid leukaemia
     Dosage: CONTRAMAL L.P.
     Route: 065
     Dates: start: 20250630, end: 20250716
  11. VESANOID [Suspect]
     Active Substance: TRETINOIN
     Indication: Acute myeloid leukaemia
     Route: 065
     Dates: start: 20250626, end: 20250808
  12. AMOXICILLIN [Concomitant]
     Active Substance: AMOXICILLIN
     Indication: Antibiotic prophylaxis
     Dosage: DISPERSIBLE FILM-COATED TABLET
     Route: 048
     Dates: start: 20250724, end: 20250807
  13. PANTOPRAZOLE SODIUM [Concomitant]
     Active Substance: PANTOPRAZOLE SODIUM
     Indication: Prophylaxis against gastrointestinal ulcer
     Route: 065
     Dates: start: 20250626, end: 20250729
  14. PANTOPRAZOLE SODIUM [Concomitant]
     Active Substance: PANTOPRAZOLE SODIUM
     Indication: Prophylaxis against gastrointestinal ulcer
     Route: 065
     Dates: start: 20250729
  15. MELATONIN [Concomitant]
     Active Substance: MELATONIN
     Indication: Sleep disorder
     Route: 048
     Dates: start: 20250717

REACTIONS (1)
  - Cerebellar syndrome [Recovered/Resolved]

NARRATIVE: CASE EVENT DATE: 20250808
